FAERS Safety Report 8476877-X (Version None)
Quarter: 2012Q2

REPORT INFORMATION
  Report Type: 
  Country: None (occurrence: None)
  Receive Date: 20120629
  Receipt Date: 20120620
  Transmission Date: 20120825
  Serious: Yes (Hospitalization)
  Sender: FDA-Public Use
  Company Number: US-BIOGENIDEC-2012BI022248

PATIENT
  Age: 56 Year
  Sex: Female

DRUGS (4)
  1. AVONEX [Suspect]
     Indication: MULTIPLE SCLEROSIS
     Route: 030
     Dates: start: 19990301, end: 20030901
  2. ALPHA MEDICATIONS NOS [Concomitant]
     Route: 048
  3. AVONEX [Suspect]
     Route: 030
     Dates: start: 20040501
  4. AVONEX [Suspect]
     Route: 030
     Dates: start: 20030901, end: 20040501

REACTIONS (3)
  - ABDOMINAL PAIN [None]
  - CYSTITIS [None]
  - MOBILITY DECREASED [None]
